FAERS Safety Report 6665980-2 (Version None)
Quarter: 2010Q2

REPORT INFORMATION
  Report Type: 
  Country: None (occurrence: None)
  Receive Date: 20100402
  Receipt Date: 20100323
  Transmission Date: 20101027
  Serious: Yes (Hospitalization)
  Sender: FDA-Public Use
  Company Number: US-JNJFOC-20100112002

PATIENT
  Age: 68 Year
  Sex: Female
  Weight: 77.11 kg

DRUGS (5)
  1. TYLENOL [Suspect]
     Route: 048
  2. TYLENOL [Suspect]
     Indication: ARTHRITIS
     Route: 048
  3. EXTRA STRENGTH TYLENOL PM [Suspect]
     Indication: DRUG USE FOR UNKNOWN INDICATION
     Route: 048
  4. INSULIN [Concomitant]
     Indication: DIABETES MELLITUS
  5. GLUCOTROL [Concomitant]
     Indication: DIABETES MELLITUS

REACTIONS (2)
  - DIARRHOEA [None]
  - PRODUCT QUALITY ISSUE [None]
